FAERS Safety Report 4958762-0 (Version None)
Quarter: 2006Q1

REPORT INFORMATION
  Report Type: 
  Country: None (occurrence: None)
  Receive Date: 20060127
  Receipt Date: 20050908
  Transmission Date: 20060701
  Serious: No
  Sender: FDA-Public Use
  Company Number: 2005-US-00066

PATIENT
  Age: 52 Year
  Sex: Male
  Weight: 103.4201 kg

DRUGS (2)
  1. CLOZAPINE [Suspect]
     Indication: SCHIZOAFFECTIVE DISORDER
     Dosage: 700 MG, QD, ORAL
     Route: 048
     Dates: start: 19990901
  2. CLARITHROMYCIN [Suspect]
     Indication: TOOTH ABSCESS
     Dosage: 500 MG BID, ORAL
     Route: 048
     Dates: start: 20050826, end: 20050905

REACTIONS (6)
  - DIZZINESS [None]
  - DROOLING [None]
  - DRUG LEVEL INCREASED [None]
  - DYSARTHRIA [None]
  - LETHARGY [None]
  - TACHYCARDIA [None]
